FAERS Safety Report 19622339 (Version 1)
Quarter: 2021Q3

REPORT INFORMATION
  Report Type: Spontaneous
  Country: ID (occurrence: ID)
  Receive Date: 20210728
  Receipt Date: 20210728
  Transmission Date: 20211014
  Serious: Yes (Hospitalization, Other)
  Sender: FDA-Public Use
  Company Number: ID-SA-2021SA234620

PATIENT
  Age: 77 Year
  Sex: Male

DRUGS (5)
  1. ACETYLSALICYLIC ACID [Interacting]
     Active Substance: ASPIRIN
  2. WARFARIN SODIUM. [Interacting]
     Active Substance: WARFARIN SODIUM
     Indication: ANTICOAGULANT THERAPY
     Dosage: 2 MG, QD, DAY 2 OF TREATMENT
  3. WARFARIN SODIUM. [Interacting]
     Active Substance: WARFARIN SODIUM
     Dosage: 3 MG, QD, DAY 4 OF TREATMENT
  4. RANITIDINE. [Suspect]
     Active Substance: RANITIDINE
  5. WARFARIN SODIUM. [Interacting]
     Active Substance: WARFARIN SODIUM
     Dosage: 3 MG, QD, DY 8 OF TREATMENT

REACTIONS (4)
  - Haemorrhage [Unknown]
  - Anaemia [Unknown]
  - Drug interaction [Unknown]
  - Haematuria [Unknown]
